FAERS Safety Report 9563729 (Version 1)
Quarter: 2013Q3

REPORT INFORMATION
  Report Type: Spontaneous
  Country: US (occurrence: None)
  Receive Date: 20130926
  Receipt Date: 20130926
  Transmission Date: 20140515
  Serious: Yes (Life-Threatening, Hospitalization, Disabling, Other)
  Sender: FDA-Public Use
  Company Number: None

PATIENT
  Age: 63 Year
  Sex: Male
  Weight: 86.18 kg

DRUGS (1)
  1. VERSED [Suspect]
     Indication: THERAPEUTIC PROCEDURE
     Dosage: BEFORE SURGURY
     Dates: start: 2010, end: 2013

REACTIONS (7)
  - Hypersomnia [None]
  - Malaise [None]
  - Activities of daily living impaired [None]
  - Screaming [None]
  - Sedation [None]
  - Depressed level of consciousness [None]
  - Contrast media allergy [None]
